FAERS Safety Report 5489091-7 (Version None)
Quarter: 2007Q4

REPORT INFORMATION
  Report Type: 
  Country: None (occurrence: None)
  Receive Date: 20071018
  Receipt Date: 20070904
  Transmission Date: 20080405
  Serious: No
  Sender: FDA-Public Use
  Company Number: US-KINGPHARMUSA00001-K200701140

PATIENT

DRUGS (1)
  1. SYNERCID [Suspect]
     Route: 042
     Dates: start: 20070903

REACTIONS (1)
  - EXTRAVASATION [None]
